FAERS Safety Report 17071551 (Version 1)
Quarter: 2019Q4

REPORT INFORMATION
  Report Type: Spontaneous
  Country: US (occurrence: US)
  Receive Date: 20191125
  Receipt Date: 20191125
  Transmission Date: 20200122
  Serious: No
  Sender: FDA-Public Use
  Company Number: US-MYLANLABS-2019M1109052

PATIENT
  Sex: Female
  Weight: 77 kg

DRUGS (1)
  1. ALPRAZOLAM TABLETS, USP [Suspect]
     Active Substance: ALPRAZOLAM
     Indication: PANIC ATTACK
     Dosage: 0.5 MILLIGRAM, PRN
     Route: 048
     Dates: start: 201704

REACTIONS (2)
  - Migraine [Recovering/Resolving]
  - Recalled product administered [Recovering/Resolving]

NARRATIVE: CASE EVENT DATE: 2017
